FAERS Safety Report 25547101 (Version 1)
Quarter: 2025Q3

REPORT INFORMATION
  Report Type: Spontaneous
  Country: JP (occurrence: JP)
  Receive Date: 20250714
  Receipt Date: 20250714
  Transmission Date: 20251020
  Serious: Yes (Hospitalization, Other)
  Sender: AMGEN
  Company Number: JP-BEH-2025206994

PATIENT
  Age: 10 Decade
  Sex: Female

DRUGS (18)
  1. TAVNEOS [Suspect]
     Active Substance: AVACOPAN
     Indication: Microscopic polyangiitis
     Dosage: 60 MG, QD
     Route: 048
     Dates: start: 20250217, end: 20250317
  2. PREDNISOLONE [Concomitant]
     Active Substance: PREDNISOLONE
     Indication: Microscopic polyangiitis
     Dosage: 5 MG, QD
     Dates: start: 20250217
  3. SULFAMETHOXAZOLE\TRIMETHOPRIM [Concomitant]
     Active Substance: SULFAMETHOXAZOLE\TRIMETHOPRIM
     Route: 048
     Dates: end: 20240708
  4. PENTAMIDINE [Concomitant]
     Active Substance: PENTAMIDINE
     Indication: Prophylaxis
     Dosage: 1 DF, QMT
     Route: 055
     Dates: start: 20240708, end: 20250217
  5. VONOPRAZAN FUMARATE [Concomitant]
     Active Substance: VONOPRAZAN FUMARATE
     Route: 048
     Dates: start: 20250331, end: 20250520
  6. BENIDIPINE HYDROCHLORIDE [Concomitant]
     Active Substance: BENIDIPINE HYDROCHLORIDE
     Indication: Hypertension
     Route: 048
     Dates: end: 20250331
  7. ROSUVASTATIN [Concomitant]
     Active Substance: ROSUVASTATIN
     Indication: Dyslipidaemia
     Route: 048
     Dates: start: 20250331
  8. ALFACALCIDOL [Concomitant]
     Active Substance: ALFACALCIDOL
     Indication: Vitamin supplementation
     Route: 048
     Dates: start: 20240606, end: 20250331
  9. ALENDRONATE [Concomitant]
     Active Substance: ALENDRONATE SODIUM
     Indication: Osteoporosis
     Dates: start: 20240930, end: 20250331
  10. MIROGABALIN BESYLATE [Concomitant]
     Active Substance: MIROGABALIN BESYLATE
     Indication: Neuralgia
     Route: 048
     Dates: start: 20241028, end: 20250331
  11. EURAX [Concomitant]
     Active Substance: CROTAMITON
     Indication: Pruritus
     Dates: start: 20250415, end: 20250521
  12. PIPERACILLIN SODIUM\TAZOBACTAM SODIUM [Concomitant]
     Active Substance: PIPERACILLIN SODIUM\TAZOBACTAM SODIUM
     Indication: Urinary tract infection
     Dates: start: 20250516
  13. VONOPRAZAN FUMARATE [Concomitant]
     Active Substance: VONOPRAZAN FUMARATE
     Dates: start: 20250520
  14. CEFAZOLIN [Concomitant]
     Active Substance: CEFAZOLIN
     Indication: Urinary tract infection
  15. VALACYCLOVIR HYDROCHLORIDE [Concomitant]
     Active Substance: VALACYCLOVIR HYDROCHLORIDE
     Indication: Lip erosion
     Dosage: 500 MG, BID
     Dates: start: 20250521, end: 20250525
  16. GENTAMICIN SULFATE [Concomitant]
     Active Substance: GENTAMICIN SULFATE
     Indication: Lip erosion
  17. POLAPREZINC [Concomitant]
     Active Substance: POLAPREZINC
     Indication: Hypozincaemia
     Dosage: 150 MG, QD
     Dates: start: 20250522
  18. POLAPREZINC [Concomitant]
     Active Substance: POLAPREZINC
     Indication: Decreased appetite
     Dosage: 75 MG, QD

REACTIONS (2)
  - Drug-induced liver injury [Not Recovered/Not Resolved]
  - Vanishing bile duct syndrome [Unknown]

NARRATIVE: CASE EVENT DATE: 20250317
